FAERS Safety Report 9856727 (Version 4)
Quarter: 2014Q2

REPORT INFORMATION
  Report Type: Spontaneous
  Country: JP (occurrence: JP)
  Receive Date: 20140130
  Receipt Date: 20140416
  Transmission Date: 20141212
  Serious: Yes (Disabling)
  Sender: FDA-Public Use
  Company Number: JP-TAKEDA-2013TJP000570

PATIENT
  Age: 84 Year
  Sex: Female
  Weight: 47 kg

DRUGS (13)
  1. LANSAP 400 [Suspect]
     Indication: HELICOBACTER INFECTION
     Dosage: 0.5 DF, BID
     Route: 048
     Dates: start: 20130903, end: 20130903
  2. LANSAP 400 [Interacting]
     Dosage: 0.5 DF, QD
     Route: 048
     Dates: start: 20130904, end: 20130904
  3. GLIMEPIRIDE [Interacting]
     Indication: TYPE 2 DIABETES MELLITUS
     Dosage: 2 MG, QD
     Route: 048
     Dates: end: 20130904
  4. BAYASPIRIN [Concomitant]
     Indication: ANGINA PECTORIS
     Dosage: 100 MG, QD
     Route: 048
     Dates: start: 20130830, end: 20130904
  5. AMLODIPINE                         /00972402/ [Concomitant]
     Indication: ESSENTIAL HYPERTENSION
     Dosage: 2.5 MG, QD
     Route: 048
     Dates: end: 20130904
  6. AMLODIPINE                         /00972402/ [Concomitant]
     Indication: ANGINA PECTORIS
  7. SPIRONOLACTONE [Concomitant]
     Indication: ESSENTIAL HYPERTENSION
     Dosage: 25 MG, QD
     Route: 048
     Dates: end: 20130904
  8. AMLODIN [Concomitant]
     Indication: ESSENTIAL HYPERTENSION
     Dosage: 5 MG, QD
     Route: 048
     Dates: end: 20130904
  9. PREMINENT [Concomitant]
     Indication: ESSENTIAL HYPERTENSION
     Dosage: 1 DF, QD
     Route: 048
     Dates: end: 20130904
  10. LANIRAPID [Concomitant]
     Indication: CARDIAC FAILURE CHRONIC
     Dosage: 0.05 MG, QD
     Route: 048
     Dates: end: 20130904
  11. LANIRAPID [Concomitant]
     Indication: ATRIAL FIBRILLATION
  12. ARTIST [Concomitant]
     Indication: ESSENTIAL HYPERTENSION
     Dosage: 10 MG, QD
     Route: 048
     Dates: end: 20130904
  13. ARTIST [Concomitant]
     Indication: ANGINA PECTORIS

REACTIONS (3)
  - Hypoglycaemia [Recovered/Resolved with Sequelae]
  - Hypoglycaemic encephalopathy [Recovered/Resolved with Sequelae]
  - Drug interaction [Recovered/Resolved with Sequelae]
